FAERS Safety Report 6687842-7 (Version None)
Quarter: 2010Q2

REPORT INFORMATION
  Report Type: 
  Country: None (occurrence: None)
  Receive Date: 20100409
  Receipt Date: 20090402
  Transmission Date: 20101027
  Serious: Yes (Hospitalization)
  Sender: FDA-Public Use
  Company Number: AE  2009-045

PATIENT
  Age: 29 Year
  Sex: Male

DRUGS (1)
  1. FAZACLO ODT [Suspect]
     Dosage: 350 MG DAILY PO
     Route: 048
     Dates: start: 20080320, end: 20090402

REACTIONS (2)
  - LEUKOCYTOSIS [None]
  - PYREXIA [None]
